FAERS Safety Report 15763817 (Version 2)
Quarter: 2019Q1

REPORT INFORMATION
  Report Type: Spontaneous
  Country: ES (occurrence: ES)
  Receive Date: 20181227
  Receipt Date: 20190102
  Transmission Date: 20190417
  Serious: Yes (Hospitalization)
  Sender: FDA-Public Use
  Company Number: ES-BAYER-2018-239725

PATIENT
  Age: 82 Year
  Sex: Male

DRUGS (4)
  1. XOFIGO [Suspect]
     Active Substance: RADIUM RA-223 DICHLORIDE
     Indication: METASTASES TO BONE
  2. OPIUM [PAPAVER SOMNIFERUM] [Concomitant]
     Indication: PAIN
  3. DEXAMETASON [DEXAMETHASONE] [Concomitant]
  4. XOFIGO [Suspect]
     Active Substance: RADIUM RA-223 DICHLORIDE
     Indication: HORMONE-REFRACTORY PROSTATE CANCER
     Dosage: UNK
     Dates: start: 201708

REACTIONS (5)
  - Urosepsis [None]
  - Lymphadenopathy [None]
  - Abdominal lymphadenopathy [None]
  - General physical health deterioration [None]
  - Spinal pain [None]

NARRATIVE: CASE EVENT DATE: 201711
